FAERS Safety Report 21216441 (Version 1)
Quarter: 2022Q3

REPORT INFORMATION
  Report Type: Spontaneous
  Country: US (occurrence: None)
  Receive Date: 20220815
  Receipt Date: 20220815
  Transmission Date: 20221026
  Serious: No
  Sender: FDA-Public Use
  Company Number: None

PATIENT
  Age: 74 Year
  Sex: Female
  Weight: 56.25 kg

DRUGS (8)
  1. CYCLOSPORINE [Suspect]
     Active Substance: CYCLOSPORINE
     Indication: Dry eye
     Dosage: OTHER QUANTITY : 1 DROP(S);?FREQUENCY : TWICE A DAY;?
     Route: 047
     Dates: start: 20220812, end: 20220813
  2. LOVASTATIN [Concomitant]
     Active Substance: LOVASTATIN
  3. RESTASIS [Concomitant]
  4. MULTI-VI [Concomitant]
  5. VITAMIN D3 [Concomitant]
     Active Substance: CHOLECALCIFEROL
  6. VITAMIN B12 [Concomitant]
     Active Substance: CYANOCOBALAMIN
  7. CALCIUM [Concomitant]
  8. MAGNESIUM [Concomitant]

REACTIONS (3)
  - Eye irritation [None]
  - Ocular hyperaemia [None]
  - Product substitution issue [None]

NARRATIVE: CASE EVENT DATE: 20220813
